FAERS Safety Report 9162348 (Version 2)
Quarter: 2013Q2

REPORT INFORMATION
  Report Type: Spontaneous
  Country: US (occurrence: US)
  Receive Date: 20130314
  Receipt Date: 20130517
  Transmission Date: 20140414
  Serious: Yes (Other)
  Sender: FDA-Public Use
  Company Number: US-PFIZER INC-2013084792

PATIENT
  Age: 44 Year
  Sex: Male

DRUGS (1)
  1. CHANTIX [Suspect]
     Dosage: 1 MG, UNK
     Dates: start: 20090427, end: 20090616

REACTIONS (2)
  - Depression [Unknown]
  - Anxiety [Unknown]
